FAERS Safety Report 4891242-X (Version None)
Quarter: 2006Q1

REPORT INFORMATION
  Report Type: 
  Country: None (occurrence: None)
  Receive Date: 20060125
  Receipt Date: 20051012
  Transmission Date: 20060701
  Serious: Yes (Hospitalization)
  Sender: FDA-Public Use
  Company Number: GBWYE140815NOV05

PATIENT
  Sex: Male

DRUGS (9)
  1. ENBREL [Suspect]
     Indication: RHEUMATOID ARTHRITIS
     Route: 058
     Dates: start: 20041101, end: 20050923
  2. CODEINE PHOSPHATE/PARACETAMOL [Concomitant]
     Route: 065
  3. PREDNISOLONE [Concomitant]
     Route: 065
  4. DICLOFENAC [Concomitant]
     Route: 065
  5. ACETYLSALICYLIC ACID [Concomitant]
     Route: 065
  6. RABEPRAZOLE SODIUM [Concomitant]
     Route: 065
  7. SIMVASTATIN [Concomitant]
     Route: 065
  8. ADCAL [Concomitant]
     Route: 065
  9. ATENOLOL [Concomitant]
     Route: 065

REACTIONS (4)
  - CEREBRAL ISCHAEMIA [None]
  - EPILEPSY [None]
  - LACUNAR INFARCTION [None]
  - LOSS OF CONSCIOUSNESS [None]
